FAERS Safety Report 19077516 (Version 1)
Quarter: 2021Q1

REPORT INFORMATION
  Report Type: Spontaneous
  Country: CH (occurrence: CH)
  Receive Date: 20210331
  Receipt Date: 20210331
  Transmission Date: 20210420
  Serious: Yes (Other)
  Sender: FDA-Public Use
  Company Number: CH-ROCHE-2800594

PATIENT

DRUGS (4)
  1. LUCENTIS [Suspect]
     Active Substance: RANIBIZUMAB
     Indication: CHRONIC KIDNEY DISEASE
     Dosage: UNK
     Route: 065
  2. LUCENTIS [Suspect]
     Active Substance: RANIBIZUMAB
     Indication: VISUAL ACUITY REDUCED
  3. LUCENTIS [Suspect]
     Active Substance: RANIBIZUMAB
     Indication: CHORIORETINOPATHY
  4. LUCENTIS [Suspect]
     Active Substance: RANIBIZUMAB
     Indication: HYPERMETROPIA

REACTIONS (4)
  - Off label use [Unknown]
  - Visual acuity reduced [Unknown]
  - Subretinal fluid [Unknown]
  - Intentional product use issue [Unknown]
